FAERS Safety Report 6239644-3 (Version None)
Quarter: 2009Q2

REPORT INFORMATION
  Report Type: 
  Country: None (occurrence: None)
  Receive Date: 20090619
  Receipt Date: 20090608
  Transmission Date: 20091009
  Serious: Yes (Death)
  Sender: FDA-Public Use
  Company Number: 2009-198410-NL

PATIENT

DRUGS (5)
  1. DEXAMETHASONE [Suspect]
     Indication: MULTIPLE MYELOMA
     Dosage: 40 MG
     Route: 048
     Dates: start: 20081104
  2. DASATINIB [Suspect]
     Indication: MULTIPLE MYELOMA
     Dosage: 70 MG/50 MG 13 WEEKS 2 DAYS/ NI
     Route: 048
     Dates: start: 20081104, end: 20090211
  3. DASATINIB [Suspect]
     Indication: MULTIPLE MYELOMA
     Dosage: 70 MG/50 MG 13 WEEKS 2 DAYS/ NI
     Route: 048
     Dates: start: 20090212
  4. LENALIDOMIDE [Suspect]
     Indication: MULTIPLE MYELOMA
     Dosage: 20 MG
     Route: 048
     Dates: start: 20081104
  5. TRAMADOL HYDROCHLORIDE [Concomitant]

REACTIONS (1)
  - SEPSIS [None]
